FAERS Safety Report 9199598 (Version 1)
Quarter: 2013Q1

REPORT INFORMATION
  Report Type: Spontaneous
  Country: US (occurrence: US)
  Receive Date: 20130329
  Receipt Date: 20130329
  Transmission Date: 20140127
  Serious: No
  Sender: FDA-Public Use
  Company Number: US-GLAXOSMITHKLINE-A1010094A

PATIENT
  Age: 75 Year
  Sex: Female
  Weight: 116.8 kg

DRUGS (9)
  1. BENLYSTA [Suspect]
     Indication: SYSTEMIC LUPUS ERYTHEMATOSUS
     Dosage: 10MGK MONTHLY
     Route: 042
     Dates: start: 20120328
  2. COUMADIN [Concomitant]
     Indication: DEEP VEIN THROMBOSIS
     Route: 048
     Dates: start: 201210
  3. PREDNISONE [Concomitant]
     Indication: SYSTEMIC LUPUS ERYTHEMATOSUS
     Route: 048
     Dates: start: 1995
  4. RANITIDINE [Concomitant]
     Indication: GASTROOESOPHAGEAL REFLUX DISEASE
     Route: 048
     Dates: start: 20110714
  5. LASIX [Concomitant]
     Route: 048
     Dates: start: 1992
  6. LOSARTAN [Concomitant]
     Indication: HYPERTENSION
     Route: 048
     Dates: start: 1996
  7. METOPROLOL [Concomitant]
     Indication: HYPERTENSION
     Route: 048
     Dates: start: 20110714
  8. SIMVASTATIN [Concomitant]
     Indication: LIPIDS INCREASED
     Route: 048
     Dates: start: 2009
  9. METFORMIN [Concomitant]
     Indication: TYPE 2 DIABETES MELLITUS
     Route: 048
     Dates: start: 2007

REACTIONS (1)
  - Coagulopathy [Recovered/Resolved]
